FAERS Safety Report 9818792 (Version 4)
Quarter: 2014Q4

REPORT INFORMATION
  Report Type: Spontaneous
  Country: US (occurrence: US)
  Receive Date: 20140115
  Receipt Date: 20141217
  Transmission Date: 20150529
  Serious: Yes (Death, Life-Threatening, Hospitalization, Other)
  Sender: FDA-Public Use
  Company Number: US-MERCK-1401USA004785

PATIENT
  Sex: Male
  Weight: 111.11 kg

DRUGS (2)
  1. ACTOS [Concomitant]
     Active Substance: PIOGLITAZONE HYDROCHLORIDE
     Indication: TYPE 2 DIABETES MELLITUS
  2. JANUVIA [Suspect]
     Active Substance: SITAGLIPTIN PHOSPHATE
     Indication: DIABETES MELLITUS
     Dosage: 100 MG, QD
     Route: 048
     Dates: start: 20090731

REACTIONS (8)
  - Depression [Unknown]
  - Pancreatic carcinoma [Fatal]
  - Treatment noncompliance [Unknown]
  - Metastases to liver [Unknown]
  - Hypertension [Unknown]
  - Back pain [Unknown]
  - Hyperlipidaemia [Unknown]
  - Viral infection [Unknown]

NARRATIVE: CASE EVENT DATE: 20090731
